FAERS Safety Report 25593573 (Version 2)
Quarter: 2025Q3

REPORT INFORMATION
  Report Type: Spontaneous
  Country: US (occurrence: US)
  Receive Date: 20250722
  Receipt Date: 20250731
  Transmission Date: 20251021
  Serious: Yes (Life-Threatening, Hospitalization, Other)
  Sender: CIPLA
  Company Number: US-CIPLA LTD.-2025US08921

PATIENT

DRUGS (3)
  1. METOPROLOL [Suspect]
     Active Substance: METOPROLOL
     Indication: Product used for unknown indication
     Route: 048
  2. DILTIAZEM [Suspect]
     Active Substance: DILTIAZEM
     Indication: Product used for unknown indication
     Route: 048
  3. FLUOXETINE [Suspect]
     Active Substance: FLUOXETINE HYDROCHLORIDE
     Indication: Product used for unknown indication
     Route: 048

REACTIONS (8)
  - Overdose [Unknown]
  - Metabolic acidosis [Recovered/Resolved]
  - Cardiogenic shock [Recovered/Resolved]
  - Hypertransaminasaemia [Recovered/Resolved]
  - Ischaemic stroke [Recovered/Resolved]
  - Haemorrhagic stroke [Recovered/Resolved]
  - Urine output decreased [Recovered/Resolved]
  - Bradycardia [Recovered/Resolved]
